FAERS Safety Report 4370557-8 (Version None)
Quarter: 2004Q2

REPORT INFORMATION
  Report Type: 
  Country: None (occurrence: None)
  Receive Date: 20040601
  Receipt Date: 20040127
  Transmission Date: 20050107
  Serious: Yes (Other)
  Sender: FDA-Public Use
  Company Number: US065475

PATIENT
  Age: 57 Year
  Sex: Male

DRUGS (2)
  1. ENBREL [Suspect]
     Indication: RHEUMATOID ARTHRITIS
     Dosage: 25 MG, 2 IN 1 WEEKS
     Dates: start: 20010601, end: 20030901
  2. ADALIMUMAB [Suspect]
     Dates: start: 20030201, end: 20030401

REACTIONS (1)
  - LYMPHOMA [None]
